FAERS Safety Report 13906031 (Version 5)
Quarter: 2020Q3

REPORT INFORMATION
  Report Type: Spontaneous
  Country: US (occurrence: US)
  Receive Date: 20170825
  Receipt Date: 20200826
  Transmission Date: 20201102
  Serious: Yes (Hospitalization, Other)
  Sender: FDA-Public Use
  Company Number: US-PFIZER INC-2017363963

PATIENT
  Age: 70 Year
  Sex: Female
  Weight: 88.44 kg

DRUGS (10)
  1. DILANTIN [Suspect]
     Active Substance: PHENYTOIN
     Indication: GENERALISED TONIC-CLONIC SEIZURE
     Dosage: 400 MG, DAILY (100 MG: TWO IN MORNING AND TWO AT NIGHT)
  2. ATENOLOL. [Concomitant]
     Active Substance: ATENOLOL
     Dosage: 50 MG, UNK
  3. CITALOPRAM [Concomitant]
     Active Substance: CITALOPRAM HYDROBROMIDE
     Dosage: 20 MG, DAILY
  4. ATORVASTATIN CALCIUM. [Concomitant]
     Active Substance: ATORVASTATIN CALCIUM
     Dosage: 40 MG, 1X/DAY
  5. DILANTIN [Suspect]
     Active Substance: PHENYTOIN
     Dosage: 300 MG, DAILY (100 MG IN MORNING AND 200 MG AT NIGHT)
     Route: 048
  6. WARFARIN [Concomitant]
     Active Substance: WARFARIN
     Indication: COAGULOPATHY
     Dosage: 6 MG, UNK
  7. LETROZOLE. [Concomitant]
     Active Substance: LETROZOLE
     Indication: BREAST CANCER
     Dosage: 2.5 MG, DAILY
     Route: 048
  8. FUROSEMIDE. [Concomitant]
     Active Substance: FUROSEMIDE
     Dosage: 20 MG, 2X/DAY (40 MG TABLET, HALF A TABLET TWICE A DAY/1/2 AM ? 1/2 PM)
  9. COUMADIN [Concomitant]
     Active Substance: WARFARIN SODIUM
     Dosage: 6 MG, DAILY
  10. BAYER ASPIRIN [Concomitant]
     Active Substance: ASPIRIN
     Dosage: 81 MG, DAILY

REACTIONS (9)
  - Loss of consciousness [Unknown]
  - Anticonvulsant drug level above therapeutic [Unknown]
  - Basal cell carcinoma [Not Recovered/Not Resolved]
  - Generalised tonic-clonic seizure [Unknown]
  - Fall [Unknown]
  - Head injury [Unknown]
  - Neoplasm recurrence [Unknown]
  - Intentional product use issue [Unknown]
  - Ecchymosis [Unknown]
